FAERS Safety Report 24311722 (Version 1)
Quarter: 2024Q3

REPORT INFORMATION
  Report Type: Spontaneous
  Country: IT (occurrence: IT)
  Receive Date: 20240912
  Receipt Date: 20240912
  Transmission Date: 20241017
  Serious: Yes (Other)
  Sender: BAXTER
  Company Number: None

PATIENT
  Age: 39 Year
  Sex: Male

DRUGS (22)
  1. CYCLOPHOSPHAMIDE [Suspect]
     Active Substance: CYCLOPHOSPHAMIDE
     Indication: Diffuse large B-cell lymphoma
     Dosage: R-CHOP PROTOCOL (2 CYCLES OF RITUXIMAB +6 CYCLES OF CYCLOPHOSPHAMIDE, VINCRISTINE, AND DOXORUBICIN)
     Route: 065
  2. CYCLOPHOSPHAMIDE [Suspect]
     Active Substance: CYCLOPHOSPHAMIDE
     Dosage: AT THE THIRD CYCLE, THE DOSAGE OF CHEMOTHERAPY DRUGS WAS REDUCED (75%)
     Route: 065
  3. DOXORUBICIN [Suspect]
     Active Substance: DOXORUBICIN
     Indication: Diffuse large B-cell lymphoma
     Dosage: R-CHOP PROTOCOL (2 CYCLES OF RITUXIMAB +6 CYCLES OF CYCLOPHOSPHAMIDE, VINCRISTINE, AND DOXORUBICIN)
     Route: 065
  4. DOXORUBICIN [Suspect]
     Active Substance: DOXORUBICIN
     Dosage: AT THE THIRD CYCLE, THE DOSAGE OF CHEMOTHERAPY DRUGS WAS REDUCED (75%)
     Route: 065
  5. RITUXIMAB [Suspect]
     Active Substance: RITUXIMAB
     Indication: Diffuse large B-cell lymphoma
     Dosage: R-CHOP PROTOCOL (2 CYCLES OF RITUXIMAB +6 CYCLES OF CYCLOPHOSPHAMIDE, VINCRISTINE, AND DOXORUBICIN)
     Route: 065
  6. RITUXIMAB [Suspect]
     Active Substance: RITUXIMAB
     Dosage: AT THE THIRD CYCLE, THE DOSAGE OF CHEMOTHERAPY DRUGS WAS REDUCED (75%)
     Route: 065
  7. PREDNISONE [Suspect]
     Active Substance: PREDNISONE
     Indication: Diffuse large B-cell lymphoma
     Dosage: R-CHOP CHEMOTHERAPY
     Route: 065
  8. PREDNISONE [Suspect]
     Active Substance: PREDNISONE
     Dosage: AT THE THIRD CYCLE, THE DOSAGE OF CHEMOTHERAPY DRUGS WAS REDUCED (75%)
     Route: 065
  9. VINCRISTINE [Suspect]
     Active Substance: VINCRISTINE
     Indication: Diffuse large B-cell lymphoma
     Dosage: R-CHOP PROTOCOL (2 CYCLES OF RITUXIMAB +6 CYCLES OF CYCLOPHOSPHAMIDE, VINCRISTINE, AND DOXORUBICIN)
     Route: 065
  10. VINCRISTINE [Suspect]
     Active Substance: VINCRISTINE
     Dosage: AT THE THIRD CYCLE, THE DOSAGE OF CHEMOTHERAPY DRUGS WAS REDUCED (75%)
     Route: 065
  11. LEVOCARNITINE [Concomitant]
     Active Substance: LEVOCARNITINE
     Indication: Methylmalonic acidaemia
     Dosage: 100 MG/KG/DIE
     Route: 065
  12. LEVOCARNITINE [Concomitant]
     Active Substance: LEVOCARNITINE
     Indication: Supplementation therapy
     Dosage: 6 MONTHS PRE-KIDNEY TRANSPLANTATION, L-CARNITINE 100 MG/KG
     Route: 065
  13. LEVOCARNITINE [Concomitant]
     Active Substance: LEVOCARNITINE
     Indication: Metabolic abnormality management
     Dosage: 6 MONTHS POST-KIDNEY TRANSPLANTATION, L-CARNITINE 100 MG/KG
     Route: 065
  14. LEVOCARNITINE [Concomitant]
     Active Substance: LEVOCARNITINE
     Dosage: LAST 5 YEARS, L-CARNITINE 100 MG/KG
     Route: 065
  15. LEVOCARNITINE [Concomitant]
     Active Substance: LEVOCARNITINE
     Dosage: LAST 6 MONTHS, L-CARNITINE 100 MG/KG
     Route: 065
  16. BASILIXIMAB [Concomitant]
     Active Substance: BASILIXIMAB
     Indication: Immunosuppressant drug therapy
     Route: 065
  17. TACROLIMUS [Concomitant]
     Active Substance: TACROLIMUS
     Indication: Immunosuppressant drug therapy
     Dosage: BID
     Route: 065
  18. TACROLIMUS [Concomitant]
     Active Substance: TACROLIMUS
     Dosage: RECEIVED 2.5-3 MG/DAY
     Route: 065
  19. OXCARBAZEPINE [Concomitant]
     Active Substance: OXCARBAZEPINE
     Indication: Seizure
     Dosage: WAS SUSPENDED AFTER 10 YEARS OF TREATMENT
     Route: 065
  20. SODIUM BICARBONATE [Concomitant]
     Active Substance: SODIUM BICARBONATE
     Indication: Acidosis
     Dosage: SODIUM BICARBONATE SUPPLEMENTATION (7.5 G/DAY IN THREE DOSES)
     Route: 065
  21. SODIUM BICARBONATE [Concomitant]
     Active Substance: SODIUM BICARBONATE
     Indication: Supplementation therapy
  22. VALACYCLOVIR [Concomitant]
     Active Substance: VALACYCLOVIR HYDROCHLORIDE
     Indication: Varicella
     Route: 048

REACTIONS (3)
  - Renal failure [Unknown]
  - Pancytopenia [Unknown]
  - Pyrexia [Unknown]
